FAERS Safety Report 12228822 (Version 1)
Quarter: 2016Q1

REPORT INFORMATION
  Report Type: Spontaneous
  Country: US (occurrence: None)
  Receive Date: 20160331
  Receipt Date: 20160331
  Transmission Date: 20160526
  Serious: Yes (Hospitalization, Disabling)
  Sender: FDA-Public Use
  Company Number: None

PATIENT
  Age: 28 Year
  Sex: Male
  Weight: 104.33 kg

DRUGS (1)
  1. RISPERIDONE. [Suspect]
     Active Substance: RISPERIDONE
     Indication: PRODUCT USED FOR UNKNOWN INDICATION
     Dosage: IN THE MORNING INHALATION
     Route: 055
     Dates: end: 20160329

REACTIONS (8)
  - Weight abnormal [None]
  - Hallucination, auditory [None]
  - Cardiac disorder [None]
  - Gastric disorder [None]
  - Apparent death [None]
  - Memory impairment [None]
  - Malaise [None]
  - Blood pressure abnormal [None]

NARRATIVE: CASE EVENT DATE: 20160318
